FAERS Safety Report 22085381 (Version 1)
Quarter: 2023Q1

REPORT INFORMATION
  Report Type: Spontaneous
  Country: US (occurrence: None)
  Receive Date: 20230310
  Receipt Date: 20230310
  Transmission Date: 20230418
  Serious: Yes (Life-Threatening, Disabling)
  Sender: FDA-Public Use
  Company Number: None

PATIENT
  Age: 62 Year
  Sex: Female
  Weight: 69.75 kg

DRUGS (1)
  1. RESTORIL [Suspect]
     Active Substance: TEMAZEPAM
     Indication: Sleep deficit
     Dosage: OTHER QUANTITY : 1 TABLET(S);?FREQUENCY : AT BEDTIME;?
     Route: 048
     Dates: start: 20200123, end: 20200717

REACTIONS (5)
  - Deprescribing error [None]
  - Seizure [None]
  - Withdrawal syndrome [None]
  - Nervous system disorder [None]
  - Discontinued product administered [None]

NARRATIVE: CASE EVENT DATE: 20200717
